FAERS Safety Report 7421555-9 (Version None)
Quarter: 2011Q2

REPORT INFORMATION
  Report Type: 
  Country: None (occurrence: None)
  Receive Date: 20110418
  Receipt Date: 20110406
  Transmission Date: 20111010
  Serious: Yes (Life-Threatening, Hospitalization, Other)
  Sender: FDA-Public Use
  Company Number: FR-KINGPHARMUSA00001-K201100400

PATIENT
  Age: 82 Year
  Sex: Male

DRUGS (18)
  1. LASIX [Interacting]
     Indication: CARDIAC FAILURE
     Dosage: 40 MG, DAILY
     Route: 048
     Dates: end: 20101209
  2. FENOFIBRATE [Concomitant]
     Dosage: UNK
  3. KARDEGIC [Concomitant]
     Dosage: UNK
     Dates: end: 20101210
  4. BRONCHODUAL [Concomitant]
     Dosage: UNK
  5. XYZAL [Concomitant]
     Dosage: UNK
  6. CORDARONE [Interacting]
     Indication: CARDIAC FAILURE
     Dosage: 200 MG, DAILY
     Route: 048
     Dates: end: 20101209
  7. CORDARONE [Interacting]
     Dosage: 200 MG, UNK
     Route: 048
     Dates: start: 20101213
  8. BUDESONIDE/FORMOTEROL [Concomitant]
     Dosage: UNK
  9. ALLOPURINOL [Concomitant]
     Dosage: UNK
  10. ACETAMINOPHEN [Concomitant]
     Dosage: UNK
  11. NOCTRAN [Concomitant]
     Dosage: UNK
  12. LASIX [Interacting]
     Dosage: 30 MG, DAILY
  13. DIGOXINE [Interacting]
     Indication: CARDIAC FAILURE
     Dosage: 0.25 MG, DAILY
     Route: 048
     Dates: end: 20101209
  14. ALTACE [Suspect]
     Indication: CARDIAC FAILURE
     Dosage: 10 MG, UNK
     Route: 048
     Dates: end: 20101209
  15. PROCORALAN [Suspect]
  16. ALTACE [Suspect]
     Dosage: UNK
     Dates: start: 20101213
  17. VASODILATORS USED IN CARDIAC DISEASES [Suspect]
     Indication: CARDIAC FAILURE
     Dosage: 5 MG, DAILY
     Route: 048
     Dates: end: 20101209
  18. SPIRIVA [Concomitant]
     Dosage: UNK

REACTIONS (16)
  - DRUG INTERACTION [None]
  - VOMITING [None]
  - PULMONARY OEDEMA [None]
  - THROMBOCYTOPENIA [None]
  - NAUSEA [None]
  - HYPOTENSION [None]
  - DEHYDRATION [None]
  - LUNG DISORDER [None]
  - ACUTE RESPIRATORY FAILURE [None]
  - CARDIAC FAILURE [None]
  - CARDIOACTIVE DRUG LEVEL INCREASED [None]
  - OEDEMA PERIPHERAL [None]
  - ATRIAL FIBRILLATION [None]
  - BRADYCARDIA [None]
  - RENAL FAILURE ACUTE [None]
  - VISUAL ACUITY REDUCED [None]
